FAERS Safety Report 5983225-3 (Version None)
Quarter: 2008Q4

REPORT INFORMATION
  Report Type: 
  Country: None (occurrence: None)
  Receive Date: 20081208
  Receipt Date: 20080501
  Transmission Date: 20090506
  Serious: No
  Sender: FDA-Public Use
  Company Number: US-BAYER-200811706BCC

PATIENT
  Age: 31 Year
  Sex: Female
  Weight: 59 kg

DRUGS (6)
  1. ALEVE (CAPLET) [Suspect]
     Indication: MUSCLE SPASMS
     Dosage: TOTAL DAILY DOSE: 660 MG  UNIT DOSE: 220 MG
     Route: 048
     Dates: start: 20080501
  2. WELLBUTRIN [Concomitant]
  3. LITHIUM [Concomitant]
  4. RISPERDAL [Concomitant]
  5. TOPAMAX [Concomitant]
  6. EFFEXOR [Concomitant]

REACTIONS (5)
  - HYPERSENSITIVITY [None]
  - PANIC REACTION [None]
  - PRURITUS [None]
  - SKIN BURNING SENSATION [None]
  - URTICARIA [None]
